FAERS Safety Report 23089704 (Version 3)
Quarter: 2024Q4

REPORT INFORMATION
  Report Type: Spontaneous
  Country: JP (occurrence: JP)
  Receive Date: 20231020
  Receipt Date: 20241031
  Transmission Date: 20250115
  Serious: Yes (Hospitalization)
  Sender: ROCHE
  Company Number: JP-CHUGAI-2023030001

PATIENT
  Age: 65 Year
  Sex: Male

DRUGS (1)
  1. TECENTRIQ [Suspect]
     Active Substance: ATEZOLIZUMAB
     Indication: Lung adenocarcinoma
     Dosage: 1200 NANOGRAM, ONCE/3WEEKS
     Route: 041

REACTIONS (2)
  - Interstitial lung disease [Recovering/Resolving]
  - Dermatomyositis [Recovering/Resolving]

NARRATIVE: CASE EVENT DATE: 20230101
